FAERS Safety Report 8326596-5 (Version None)
Quarter: 2012Q2

REPORT INFORMATION
  Report Type: 
  Country: None (occurrence: None)
  Receive Date: 20120501
  Receipt Date: 20090819
  Transmission Date: 20120825
  Serious: No
  Sender: FDA-Public Use
  Company Number: US-TEVA-2009009764

PATIENT
  Sex: Male
  Weight: 83.082 kg

DRUGS (16)
  1. SITAGLIPTIN/METFORMIN HCL [Concomitant]
  2. PLAVIX [Concomitant]
  3. DICLOXACILLIN [Concomitant]
  4. ATIVAN [Concomitant]
  5. LANOXIN [Concomitant]
  6. NAMENDA [Concomitant]
  7. MAGNESIUM [Concomitant]
  8. NEXIUM [Concomitant]
  9. ASPIRIN [Concomitant]
  10. MONOPRIL [Concomitant]
  11. NUVIGIL [Suspect]
     Indication: SOMNOLENCE
     Route: 048
  12. PAXIL [Concomitant]
  13. ARICEPT [Concomitant]
  14. ZOCOR [Concomitant]
  15. LORTAB [Concomitant]
  16. PERCOCET [Concomitant]

REACTIONS (8)
  - ABDOMINAL DISCOMFORT [None]
  - INTENTIONAL DRUG MISUSE [None]
  - ASTHENIA [None]
  - THERAPEUTIC RESPONSE UNEXPECTED [None]
  - ENERGY INCREASED [None]
  - PRESSURE OF SPEECH [None]
  - HYPERHIDROSIS [None]
  - DIZZINESS [None]
